FAERS Safety Report 8760475 (Version 2)
Quarter: 2012Q4

REPORT INFORMATION
  Report Type: 
  Country: AU (occurrence: AU)
  Receive Date: 20120830
  Receipt Date: 20121105
  Transmission Date: 20130627
  Serious: Yes (Other)
  Sender: FDA-Public Use
  Company Number: PHHY2012AU074219

PATIENT
  Age: 67 None
  Sex: Female

DRUGS (2)
  1. ACLASTA [Suspect]
     Indication: OSTEOPOROSIS
     Dosage: 5 mg
     Route: 042
     Dates: start: 20120117
  2. SULFASALAZINE [Concomitant]
     Indication: ARTHRALGIA
     Dosage: 1 g, UNK
     Route: 048
     Dates: start: 201203, end: 201205

REACTIONS (4)
  - Jaw disorder [Not Recovered/Not Resolved]
  - Pain in jaw [Not Recovered/Not Resolved]
  - Arthritis [Not Recovered/Not Resolved]
  - Loose tooth [Unknown]
